FAERS Safety Report 7962653-0 (Version None)
Quarter: 2011Q4

REPORT INFORMATION
  Report Type: 
  Country: None (occurrence: None)
  Receive Date: 20111207
  Receipt Date: 20111129
  Transmission Date: 20120403
  Serious: Yes (Hospitalization)
  Sender: FDA-Public Use
  Company Number: US-B.I. PHARMACEUTICALS,INC./RIDGEFIELD-2011-BP-04778BP

PATIENT
  Sex: Male

DRUGS (11)
  1. PRADAXA [Suspect]
     Indication: CEREBROVASCULAR ACCIDENT
     Dosage: 300 MG
     Route: 048
     Dates: start: 20110127, end: 20110220
  2. LISINOPRIL [Concomitant]
  3. METOPROLOL TARTRATE [Concomitant]
  4. GI COCKTAIL [Concomitant]
  5. FLOMAX [Concomitant]
     Indication: PROSTATIC DISORDER
  6. ASPIRIN [Concomitant]
  7. FINASTERIDE [Concomitant]
  8. FISH OIL [Concomitant]
  9. PROTONIX [Concomitant]
  10. LEVOXYL [Concomitant]
     Indication: THYROID DISORDER
  11. EXELON [Concomitant]

REACTIONS (2)
  - OESOPHAGEAL ULCER [None]
  - CHEST PAIN [None]
